FAERS Safety Report 6128873-5 (Version None)
Quarter: 2009Q1

REPORT INFORMATION
  Report Type: 
  Country: None (occurrence: None)
  Receive Date: 20090320
  Receipt Date: 20090313
  Transmission Date: 20090719
  Serious: Yes (Other)
  Sender: FDA-Public Use
  Company Number: CHPA2009US06381

PATIENT
  Age: 50 Year
  Sex: Female
  Weight: 63.5 kg

DRUGS (2)
  1. BENEFIBER W/WHEAT DEXTRIN (NCH)(WHEAT DEXTRIN) POWDER [Suspect]
     Indication: MEDICAL DIET
     Dosage: 2 TSP, QD, ORAL; MORE THAN 2 TSP
     Route: 048
  2. ANTIHYPERTESIVES (NO INGREDIENTS/SUSTANCES) [Concomitant]

REACTIONS (2)
  - COELIAC DISEASE [None]
  - DRUG INEFFECTIVE [None]
